FAERS Safety Report 4391075-7 (Version None)
Quarter: 2004Q2

REPORT INFORMATION
  Report Type: 
  Country: None (occurrence: None)
  Receive Date: 20040621
  Receipt Date: 20031121
  Transmission Date: 20050107
  Serious: Yes (Death)
  Sender: FDA-Public Use
  Company Number: USA-2003-0010960

PATIENT
  Age: 41 Year
  Sex: Male
  Weight: 74.4 kg

DRUGS (9)
  1. OXYCODONE HCL [Suspect]
  2. OXYMORPHONE HYDROCHLORIDE [Suspect]
  3. ETHANOL (ETHANOL) [Suspect]
  4. ACETAMINOPHEN [Suspect]
  5. COCAINE (COCAINE) [Suspect]
  6. METHADONE HCL [Suspect]
  7. DIPHENHYDRAMINE HCL [Suspect]
  8. CAFFEINE (CAFFEINE) [Suspect]
  9. CLOZAPINE [Suspect]

REACTIONS (2)
  - MULTIPLE DRUG OVERDOSE [None]
  - MULTIPLE DRUG OVERDOSE ACCIDENTAL [None]
